FAERS Safety Report 6805203-4 (Version None)
Quarter: 2010Q2

REPORT INFORMATION
  Report Type: 
  Country: None (occurrence: None)
  Receive Date: 20100628
  Receipt Date: 20071005
  Transmission Date: 20101027
  Serious: Yes (Other)
  Sender: FDA-Public Use
  Company Number: US-PFIZER INC-2007066190

PATIENT
  Sex: Female
  Weight: 55.9 kg

DRUGS (9)
  1. XALATAN [Suspect]
     Indication: GLAUCOMA
     Dates: start: 20051230
  2. XALATAN [Suspect]
     Indication: INTRAOCULAR PRESSURE INCREASED
  3. TOPROL-XL [Concomitant]
  4. PLAVIX [Concomitant]
  5. ALL OTHER THERAPEUTIC PRODUCTS [Concomitant]
  6. LIBRAX [Concomitant]
  7. PRILOSEC [Concomitant]
  8. ESTRADIOL [Concomitant]
  9. TRANXENE [Concomitant]

REACTIONS (6)
  - CONJUNCTIVAL HYPERAEMIA [None]
  - EYE PAIN [None]
  - EYE SWELLING [None]
  - HAEMORRHAGE [None]
  - OCULAR HYPERAEMIA [None]
  - VISION BLURRED [None]
